FAERS Safety Report 6440866-7 (Version None)
Quarter: 2009Q4

REPORT INFORMATION
  Report Type: 
  Country: None (occurrence: None)
  Receive Date: 20091116
  Receipt Date: 20091110
  Transmission Date: 20100525
  Serious: Yes (Death, Other)
  Sender: FDA-Public Use
  Company Number: JP-ELI_LILLY_AND_COMPANY-JP200908005177

PATIENT
  Sex: Male
  Weight: 61 kg

DRUGS (8)
  1. ALIMTA [Suspect]
     Indication: LARGE CELL LUNG CANCER RECURRENT
     Dosage: 500 MG/M2, OTHER
     Route: 042
     Dates: start: 20090812, end: 20090812
  2. PANVITAN [Concomitant]
     Dosage: 1 G, DAILY (1/D)
     Route: 048
     Dates: start: 20090805
  3. VITAMIN B-12 [Concomitant]
     Dosage: 1 MG, DAILY (1/D)
     Route: 030
     Dates: start: 20090805
  4. PREDONINE [Concomitant]
     Indication: METASTASES TO CENTRAL NERVOUS SYSTEM
     Dosage: 20 MG, UNKNOWN
     Route: 065
     Dates: start: 20090722
  5. DECADRON                                /CAN/ [Concomitant]
     Dosage: 2 MG, UNKNOWN
     Route: 065
     Dates: start: 20090413
  6. DECADRON                                /CAN/ [Concomitant]
     Dosage: 4 MG, UNKNOWN
     Route: 065
     Dates: start: 20090624
  7. HYPEN [Concomitant]
     Dosage: 2 D/F, UNKNOWN
     Route: 065
  8. TAKEPRON [Concomitant]

REACTIONS (5)
  - BLOOD SODIUM DECREASED [None]
  - LYMPHOCYTE COUNT DECREASED [None]
  - PLATELET COUNT DECREASED [None]
  - PNEUMOCYSTIS JIROVECI PNEUMONIA [None]
  - WHITE BLOOD CELL COUNT DECREASED [None]
